FAERS Safety Report 8297293-X (Version None)
Quarter: 2012Q2

REPORT INFORMATION
  Report Type: 
  Country: None (occurrence: None)
  Receive Date: 20120417
  Receipt Date: 20120403
  Transmission Date: 20120825
  Serious: Yes (Hospitalization, Other)
  Sender: FDA-Public Use
  Company Number: 2009AL002582

PATIENT
  Age: 73 Year
  Sex: Female

DRUGS (22)
  1. DIGOXIN [Suspect]
     Indication: CARDIAC FAILURE CONGESTIVE
     Dosage: 0.25 MG;QD;PO
     Route: 048
     Dates: start: 20040127, end: 20071121
  2. ASMANEX TWISTHALER [Concomitant]
  3. CYMBALTA [Concomitant]
  4. MELOXICAM [Concomitant]
  5. KLOR-CON [Concomitant]
  6. ISOSORBIDE DINITRATE [Concomitant]
  7. PERCOCET [Concomitant]
  8. OMEPRAZOLE [Concomitant]
  9. PREMPHASE 14/14 [Concomitant]
  10. LISINOPRIL [Concomitant]
  11. FISH OIL [Concomitant]
  12. CARDIZEM [Concomitant]
  13. HYDROCHLOROTHIAZIDE [Concomitant]
  14. TEKTURNA [Concomitant]
  15. VESICARE [Concomitant]
  16. BYSTOLIC [Concomitant]
  17. ASPIRIN [Concomitant]
  18. FLEXERIL [Concomitant]
  19. VITAMIN D [Concomitant]
  20. DITROPAN [Concomitant]
  21. TIAZAC [Concomitant]
  22. HYDRALAZINE HCL [Concomitant]

REACTIONS (21)
  - COLD SWEAT [None]
  - PALPITATIONS [None]
  - MULTIPLE INJURIES [None]
  - HEART RATE IRREGULAR [None]
  - HYPERLIPIDAEMIA [None]
  - DYSPNOEA [None]
  - ECONOMIC PROBLEM [None]
  - TOXICITY TO VARIOUS AGENTS [None]
  - VISUAL IMPAIRMENT [None]
  - ANGER [None]
  - HYPERTENSION [None]
  - ANHEDONIA [None]
  - BRADYCARDIA [None]
  - DIVERTICULUM [None]
  - HAEMORRHOIDS [None]
  - VENTRICULAR EXTRASYSTOLES [None]
  - VENTRICULAR TACHYCARDIA [None]
  - PAIN [None]
  - ANXIETY [None]
  - OSTEOARTHRITIS [None]
  - ATRIOVENTRICULAR BLOCK FIRST DEGREE [None]
